FAERS Safety Report 15391772 (Version 5)
Quarter: 2019Q4

REPORT INFORMATION
  Report Type: Spontaneous
  Country: CN (occurrence: CN)
  Receive Date: 20180917
  Receipt Date: 20191009
  Transmission Date: 20200122
  Serious: Yes (Life-Threatening, Other)
  Sender: FDA-Public Use
  Company Number: CN-CELGENEUS-CHN-20180903582

PATIENT
  Age: 8 Decade
  Sex: Female
  Weight: 49 kg

DRUGS (54)
  1. HYDROXYCARBAMIDE [Concomitant]
     Active Substance: HYDROXYUREA
     Indication: HYPERLEUKOCYTOSIS
     Dosage: 3 MILLIGRAM
     Route: 065
     Dates: start: 20180829, end: 20180830
  2. REDUCED GLUTATHIONE [Concomitant]
     Dosage: 2.4 GRAM
     Route: 041
     Dates: start: 20181010, end: 20181019
  3. SPIRONOLACTONE. [Concomitant]
     Active Substance: SPIRONOLACTONE
     Indication: CARDIAC DISCOMFORT
     Dosage: 40 MILLIGRAM
     Route: 048
     Dates: start: 20180906, end: 20180911
  4. RABEPRAZOLE SODIUM. [Concomitant]
     Active Substance: RABEPRAZOLE SODIUM
     Indication: GASTRITIS PROPHYLAXIS
     Dosage: 20 MILLIGRAM
     Route: 041
     Dates: start: 20180829, end: 20180918
  5. RABEPRAZOLE SODIUM. [Concomitant]
     Active Substance: RABEPRAZOLE SODIUM
     Dosage: 20 MILLIGRAM
     Route: 041
     Dates: start: 20181010, end: 20181019
  6. 5% DEXTROSE IN WATER [Concomitant]
     Indication: PROPHYLAXIS
     Route: 041
     Dates: start: 20180829, end: 20180902
  7. HYDROCHLOROTHIAZIDE. [Concomitant]
     Active Substance: HYDROCHLOROTHIAZIDE
     Indication: CARDIAC DISCOMFORT
     Dosage: 50 MG
     Route: 048
     Dates: start: 20180906, end: 20180926
  8. HYDROCHLOROTHIAZIDE. [Concomitant]
     Active Substance: HYDROCHLOROTHIAZIDE
     Indication: CARDIAC FAILURE CONGESTIVE
     Dosage: 50 MILLIGRAM
     Route: 048
     Dates: start: 20181014, end: 20181019
  9. RUPATADINE FUMARATE [Concomitant]
     Active Substance: RUPATADINE FUMARATE
     Indication: DERMATITIS ALLERGIC
     Route: 048
     Dates: start: 20180815
  10. TEICOPLANIN [Concomitant]
     Active Substance: TEICOPLANIN
     Dosage: 400 MILLIGRAM
     Route: 041
     Dates: start: 20180904
  11. AZACITIDINE. [Suspect]
     Active Substance: AZACITIDINE
     Indication: ACUTE MYELOID LEUKAEMIA
     Dosage: 75 MILLIGRAM/SQ. METER
     Route: 058
     Dates: start: 20180830
  12. VENETOCLAX. [Concomitant]
     Active Substance: VENETOCLAX
     Dosage: 200 MILLIGRAM
     Route: 048
     Dates: start: 20180831, end: 20180831
  13. ALANYL GLUTAMINE [Concomitant]
     Active Substance: ALANYL GLUTAMINE
     Indication: SUPPLEMENTATION THERAPY
     Route: 041
     Dates: start: 20180809, end: 20180827
  14. COENZYME COMPLEX [Concomitant]
     Active Substance: UNSPECIFIED INGREDIENT
     Indication: HEPATIC FAILURE
     Dosage: 400 IU (INTERNATIONAL UNIT)
     Route: 041
     Dates: start: 20180809, end: 20180826
  15. G-CSF [Concomitant]
     Active Substance: GRANULOCYTE COLONY-STIMULATING FACTOR NOS
     Indication: ANAEMIA
     Dosage: 3000 MILLIGRAM
     Route: 059
     Dates: start: 20180901, end: 20180926
  16. REDUCED GLUTATHIONE [Concomitant]
     Dosage: 2.4 GRAM
     Route: 041
     Dates: start: 20180919, end: 20180926
  17. THYMOPENTIN [Concomitant]
     Active Substance: THYMOPENTIN
     Indication: IMMUNE ENHANCEMENT THERAPY
     Dosage: 20 MILLIGRAM
     Route: 041
     Dates: start: 20180829, end: 20180904
  18. RECOMBINANT HUMAN ERYTHROPOIETIN [Concomitant]
     Active Substance: ERYTHROPOIETIN
     Dosage: 300 MICROGRAM
     Route: 058
     Dates: start: 20180901
  19. VENETOCLAX. [Concomitant]
     Active Substance: VENETOCLAX
     Indication: ACUTE MYELOID LEUKAEMIA
     Dosage: 100 MILLIGRAM
     Route: 048
     Dates: start: 20180830, end: 20180830
  20. SODIUM BICARBONATE. [Concomitant]
     Active Substance: SODIUM BICARBONATE
     Indication: PROPHYLAXIS
     Route: 041
     Dates: start: 20180829, end: 20180902
  21. ALANYL GLUTAMINE [Concomitant]
     Active Substance: ALANYL GLUTAMINE
     Route: 041
     Dates: start: 20180904, end: 20180926
  22. HYDROCHLOROTHIAZIDE. [Concomitant]
     Active Substance: HYDROCHLOROTHIAZIDE
     Indication: DIURETIC THERAPY
     Dosage: 50 MG
     Route: 048
     Dates: start: 20180809, end: 20180827
  23. PRIMAXIN IV [Concomitant]
     Active Substance: CILASTATIN SODIUM\IMIPENEM
     Indication: PNEUMONIA
     Dosage: 400 IU (INTERNATIONAL UNIT)
     Route: 041
     Dates: start: 20180830, end: 20180830
  24. MEROPENEM. [Concomitant]
     Active Substance: MEROPENEM
     Indication: PNEUMONIA
     Dosage: 3000 MILLIGRAM
     Route: 041
     Dates: start: 20180814, end: 20180827
  25. MEROPENEM. [Concomitant]
     Active Substance: MEROPENEM
     Dosage: 3000 MILLIGRAM
     Route: 041
     Dates: start: 20180831
  26. REDUCED GLUTATHIONE [Concomitant]
     Indication: PROPHYLAXIS
     Dosage: 1.8 GRAM
     Route: 041
     Dates: start: 20180829, end: 20180904
  27. CALCIUM ASPARTATE [Concomitant]
     Active Substance: CALCIUM ASPARTATE
     Indication: ELECTROLYTE SUBSTITUTION THERAPY
     Dosage: 4.5 GRAM
     Route: 041
     Dates: start: 20180904, end: 20180904
  28. FAT SOLUBLE VITAMIN AND WATER SOLUBLE VITAMIN [Concomitant]
     Indication: NUTRITIONAL SUPPLEMENTATION
     Dosage: 1 BOX
     Route: 041
     Dates: start: 20180829
  29. THYMOPENTIN [Concomitant]
     Active Substance: THYMOPENTIN
     Dosage: 20 MILLIGRAM
     Route: 041
     Dates: start: 20181010, end: 20181011
  30. NORMAL SALINE SOLUTION [Concomitant]
     Indication: PROPHYLAXIS
     Route: 041
     Dates: start: 20180829, end: 20180902
  31. AMINO ACID [Concomitant]
     Active Substance: AMINO ACIDS, SOURCE UNSPECIFIED
     Dosage: 12.5 GRAM
     Route: 041
     Dates: start: 20180904
  32. COENZYME COMPLEX [Concomitant]
     Active Substance: UNSPECIFIED INGREDIENT
     Indication: CARDIOVASCULAR EVENT PROPHYLAXIS
     Dosage: 0.3 MG
     Route: 041
     Dates: start: 20180829
  33. SPIRONOLACTONE. [Concomitant]
     Active Substance: SPIRONOLACTONE
     Indication: CARDIAC FAILURE
     Dosage: 40 MILLIGRAM
     Route: 048
     Dates: start: 20181014, end: 20181019
  34. POTASSIUM ASPARTATE [Concomitant]
     Active Substance: POTASSIUM ASPARTATE
     Indication: NUTRITIONAL SUPPLEMENTATION
     Dosage: 10 MILLILITER
     Route: 041
     Dates: start: 20180829
  35. FUROSEMIDE. [Concomitant]
     Active Substance: FUROSEMIDE
     Indication: CARDIAC FAILURE
     Dosage: 20 MILLIGRAM
     Route: 040
     Dates: start: 20180904, end: 20180904
  36. TROPISETRON CITRATE [Concomitant]
     Indication: PROPHYLAXIS OF NAUSEA AND VOMITING
     Dosage: 2 BOTTLES
     Route: 041
     Dates: start: 20180830, end: 20180905
  37. VENETOCLAX. [Concomitant]
     Active Substance: VENETOCLAX
     Dosage: 400 MILLIGRAM
     Route: 048
     Dates: start: 20180901
  38. FEBUXOSTAT. [Concomitant]
     Active Substance: FEBUXOSTAT
     Indication: RENAL IMPAIRMENT
     Dosage: 40 MILLIGRAM
     Route: 048
     Dates: start: 20181010, end: 20181019
  39. CALCIUM ASPARTATE [Concomitant]
     Active Substance: CALCIUM ASPARTATE
     Dosage: 2.25 GRAM
     Route: 041
     Dates: start: 20180904, end: 20180926
  40. HIRUDOID [Concomitant]
     Active Substance: GLYCOSAMINOGLYCANS
     Indication: PHLEBITIS
     Route: 003
     Dates: start: 20180820
  41. RECOMBINANT HUMAN ERYTHROPOIETIN [Concomitant]
     Active Substance: ERYTHROPOIETIN
     Dosage: 12000 IU (INTERNATIONAL UNIT)
     Route: 059
     Dates: start: 20180901
  42. FEBUXOSTAT. [Concomitant]
     Active Substance: FEBUXOSTAT
     Indication: PROPHYLAXIS
     Route: 048
     Dates: start: 20180829, end: 20180918
  43. AMINO ACID [Concomitant]
     Active Substance: AMINO ACIDS, SOURCE UNSPECIFIED
     Indication: SUPPLEMENTATION THERAPY
     Dosage: 12.5 GRAM
     Route: 041
     Dates: start: 20180809, end: 20180827
  44. CREATINE PHOSPHATE [Concomitant]
     Active Substance: PHOSPHOCREATINE
     Indication: PROPHYLAXIS
     Dosage: 2 GRAM
     Route: 041
     Dates: start: 20180809, end: 20180827
  45. CREATINE PHOSPHATE [Concomitant]
     Active Substance: PHOSPHOCREATINE
     Indication: CARDIAC DISORDER
     Dosage: 1 GRAM
     Route: 041
     Dates: start: 20180829
  46. REDUCED GLUTATHIONE [Concomitant]
     Dosage: 1.8 GRAM
     Route: 041
     Dates: start: 20181010, end: 20181019
  47. RECOMBINANT HUMAN ERYTHROPOIETIN [Concomitant]
     Active Substance: ERYTHROPOIETIN
     Indication: LEUKOPENIA
     Dosage: 500 MICROGRAM
     Route: 058
     Dates: start: 20180901
  48. RUPATADINE FUMARATE [Concomitant]
     Active Substance: RUPATADINE FUMARATE
     Indication: PROPHYLAXIS
  49. SPIRONOLACTONE. [Concomitant]
     Active Substance: SPIRONOLACTONE
     Indication: DIURETIC THERAPY
     Dosage: 40 MILLIGRAM
     Route: 048
     Dates: start: 20180819, end: 20180827
  50. CALCIUM ASPARTATE [Concomitant]
     Active Substance: CALCIUM ASPARTATE
     Indication: MINERAL SUPPLEMENTATION
     Dosage: 2.25 GRAM
     Route: 041
     Dates: start: 20180814, end: 20180827
  51. RECOMBINANT HUMAN ERYTHROPOIETIN [Concomitant]
     Active Substance: ERYTHROPOIETIN
     Dosage: 15 MILLIGRAM
     Route: 058
     Dates: start: 20180901
  52. POTASSIUM CHLORIDE. [Concomitant]
     Active Substance: POTASSIUM CHLORIDE
     Indication: PROPHYLAXIS
     Route: 048
     Dates: start: 20180813
  53. POTASSIUM CHLORIDE. [Concomitant]
     Active Substance: POTASSIUM CHLORIDE
     Route: 041
     Dates: start: 20181010, end: 20181019
  54. TEICOPLANIN [Concomitant]
     Active Substance: TEICOPLANIN
     Indication: PNEUMONIA
     Dosage: 800 MILLIGRAM
     Route: 041
     Dates: start: 20180903, end: 20180904

REACTIONS (1)
  - Hypoxia [Recovered/Resolved]

NARRATIVE: CASE EVENT DATE: 20180903
